FAERS Safety Report 10997251 (Version 1)
Quarter: 2015Q2

REPORT INFORMATION
  Report Type: Spontaneous
  Country: US (occurrence: US)
  Receive Date: 20150408
  Receipt Date: 20150408
  Transmission Date: 20150821
  Serious: No
  Sender: FDA-Public Use
  Company Number: US-BANPHARM-20142441

PATIENT
  Age: 59 Year
  Sex: Female
  Weight: 72.57 kg

DRUGS (2)
  1. ALEVE [Suspect]
     Active Substance: NAPROXEN SODIUM
     Dosage: 1 DF, BID,
     Route: 048
     Dates: start: 20140308, end: 20140312
  2. ALEVE [Suspect]
     Active Substance: NAPROXEN SODIUM
     Dosage: PRN,
     Route: 048
     Dates: start: 2011

REACTIONS (3)
  - Asthenia [Not Recovered/Not Resolved]
  - Nervousness [Not Recovered/Not Resolved]
  - Nausea [Not Recovered/Not Resolved]

NARRATIVE: CASE EVENT DATE: 20140310
